FAERS Safety Report 9483874 (Version 1)
Quarter: 2013Q3

REPORT INFORMATION
  Report Type: Spontaneous
  Country: US (occurrence: US)
  Receive Date: 20130828
  Receipt Date: 20130828
  Transmission Date: 20140515
  Serious: Yes (Other)
  Sender: FDA-Public Use
  Company Number: PHEH2013US018033

PATIENT
  Sex: Female

DRUGS (2)
  1. TEGRETOL-XR [Suspect]
     Dosage: 600 MG A DAY: 200 MG IN THE MORNING AND 400 MG IN THE EVENING
  2. LAMICTAL [Concomitant]
     Dosage: 100 MG, BID

REACTIONS (2)
  - Convulsion [Unknown]
  - Exposure during pregnancy [Unknown]
